FAERS Safety Report 8583413-6 (Version None)
Quarter: 2012Q3

REPORT INFORMATION
  Report Type: 
  Country: None (occurrence: None)
  Receive Date: 20120809
  Receipt Date: 20120727
  Transmission Date: 20120928
  Serious: Yes (Other)
  Sender: FDA-Public Use
  Company Number: CHPA2012US013119

PATIENT
  Sex: Female

DRUGS (1)
  1. EXCEDRIN EXTRA STRENGTH TABLETS [Suspect]
     Indication: HEADACHE
     Dosage: UNK, UNK
     Route: 048

REACTIONS (4)
  - CARDIAC DISORDER [None]
  - GASTROINTESTINAL DISORDER [None]
  - MALAISE [None]
  - DIABETES MELLITUS [None]
